FAERS Safety Report 14403303 (Version 1)
Quarter: 2018Q1

REPORT INFORMATION
  Report Type: Spontaneous
  Country: ES (occurrence: ES)
  Receive Date: 20180117
  Receipt Date: 20180117
  Transmission Date: 20180509
  Serious: Yes (Other)
  Sender: FDA-Public Use
  Company Number: ES-TEVA-2018-ES-843790

PATIENT
  Age: 89 Year
  Sex: Male

DRUGS (3)
  1. SIMVASTATINA (1023A) [Suspect]
     Active Substance: SIMVASTATIN
     Route: 048
     Dates: start: 20171211, end: 20171211
  2. OMEPRAZOL (2141A) [Interacting]
     Active Substance: OMEPRAZOLE
     Route: 048
     Dates: start: 20171211, end: 20171211
  3. QUETIAPINA (1136A) [Interacting]
     Active Substance: QUETIAPINE
     Route: 048
     Dates: start: 20171211, end: 20171211

REACTIONS (3)
  - Drug interaction [Unknown]
  - Somnolence [Unknown]
  - Wrong patient received medication [Unknown]

NARRATIVE: CASE EVENT DATE: 20171211
